FAERS Safety Report 9697986 (Version 1)
Quarter: 2013Q4

REPORT INFORMATION
  Report Type: Spontaneous
  Country: GB (occurrence: None)
  Receive Date: 20131118
  Receipt Date: 20131118
  Transmission Date: 20140711
  Serious: Yes (Hospitalization)
  Sender: FDA-Public Use
  Company Number: COL_14685_2013

PATIENT
  Age: 34 Year
  Sex: Female
  Weight: 70 kg

DRUGS (3)
  1. CHLORHEXIDINE [Suspect]
     Indication: CAESAREAN SECTION
     Route: 061
     Dates: start: 20131024, end: 20131024
  2. BENZYLPENICILLIN (BENZYLPENICILLIN) [Suspect]
     Indication: PRODUCT USED FOR UNKNOWN INDICATION
     Dosage: (1.5 G /NI/ INTRAVENOUS (NOT OTHERWISE SPECIFIED) )
     Route: 042
     Dates: start: 20131024, end: 20131024
  3. DIAMORPHINE (DIAMORPHINE) [Suspect]
     Indication: CAESAREAN SECTION
     Dosage: (3 MG/ONCE/ EPIDURAL)
     Route: 008
     Dates: start: 20131024, end: 20131024

REACTIONS (4)
  - Erythema [None]
  - Oedema [None]
  - Hypotension [None]
  - Maternal exposure timing unspecified [None]
